FAERS Safety Report 24065572 (Version 1)
Quarter: 2024Q3

REPORT INFORMATION
  Report Type: Spontaneous
  Country: PL (occurrence: PL)
  Receive Date: 20240709
  Receipt Date: 20240709
  Transmission Date: 20241016
  Serious: Yes (Other)
  Sender: BAXTER
  Company Number: None

PATIENT
  Age: 76 Year
  Sex: Female
  Weight: 86 kg

DRUGS (5)
  1. PROPOFOL [Suspect]
     Active Substance: PROPOFOL
     Dosage: (DOSAGE TEXT: THERAPY ONGOING)
     Route: 042
     Dates: start: 20240131
  2. METAMIZOLE SODIUM [Suspect]
     Active Substance: METAMIZOLE SODIUM
     Dosage: (DOSAGE TEXT: THERAPY ONGOING)
     Route: 042
     Dates: start: 20240131
  3. MARCAINE [Suspect]
     Active Substance: BUPIVACAINE HYDROCHLORIDE
     Dosage: (DOSAGE TEXT: THERAPY ONGOING)
     Route: 042
     Dates: start: 20240131
  4. FENTANYL [Suspect]
     Active Substance: FENTANYL\FENTANYL CITRATE
     Dosage: (DOSAGE FORM: THERAPY ONGOING)
     Route: 042
     Dates: start: 20240131
  5. MIDAZOLAM HYDROCHLORIDE [Suspect]
     Active Substance: MIDAZOLAM HYDROCHLORIDE
     Dosage: (DOSAGE FORM: THERAPY ONGOING)
     Route: 042
     Dates: start: 20240131

REACTIONS (3)
  - Drug ineffective [Unknown]
  - General anaesthesia [Unknown]
  - Anaesthetic complication [Unknown]

NARRATIVE: CASE EVENT DATE: 20240131
